FAERS Safety Report 5373288-0 (Version None)
Quarter: 2007Q2

REPORT INFORMATION
  Report Type: 
  Country: None (occurrence: None)
  Receive Date: 20070626
  Receipt Date: 20070626
  Transmission Date: 20071010
  Serious: Yes (Other)
  Sender: FDA-Public Use
  Company Number: None

PATIENT
  Age: 12 Year
  Sex: Male
  Weight: 41.2 kg

DRUGS (2)
  1. REMICADE [Suspect]
     Indication: UVEITIS
     Dosage: 400 MG EVERY 6 WEEKS IV
     Route: 042
     Dates: start: 20050528, end: 20070530
  2. METHOTREXATE [Suspect]
     Indication: UVEITIS
     Dosage: 15 MG WEEKLY PO
     Route: 048
     Dates: start: 20021218, end: 20070622

REACTIONS (1)
  - PERITONSILLAR ABSCESS [None]
